FAERS Safety Report 6885047-8 (Version None)
Quarter: 2010Q3

REPORT INFORMATION
  Report Type: 
  Country: None (occurrence: None)
  Receive Date: 20100729
  Receipt Date: 20071205
  Transmission Date: 20110219
  Serious: No
  Sender: FDA-Public Use
  Company Number: US-PFIZER INC-2007100096

PATIENT
  Sex: Female
  Weight: 50 kg

DRUGS (3)
  1. CELEBREX [Suspect]
     Indication: PROCEDURAL PAIN
     Route: 048
     Dates: start: 20071101
  2. SIMVASTATIN [Concomitant]
     Indication: BLOOD CHOLESTEROL ABNORMAL
  3. VITAMINS [Concomitant]

REACTIONS (1)
  - DRUG INEFFECTIVE [None]
